FAERS Safety Report 10203639 (Version 1)
Quarter: 2014Q2

REPORT INFORMATION
  Report Type: Spontaneous
  Country: US (occurrence: None)
  Receive Date: 20140523
  Receipt Date: 20140523
  Transmission Date: 20141212
  Serious: Yes (Hospitalization)
  Sender: FDA-Public Use
  Company Number: 2014AP003066

PATIENT
  Age: 28 Year
  Sex: Female
  Weight: 56.7 kg

DRUGS (4)
  1. FERRIPROX [Suspect]
     Indication: HAEMOCHROMATOSIS
     Route: 048
     Dates: start: 201402
  2. FOLIC ACID (FOLIC ACID) [Concomitant]
  3. LACTULOSE (LACTULOSE) [Concomitant]
  4. LETAIRIS (AMBRISENTAN) [Concomitant]

REACTIONS (1)
  - Investigation [None]
